FAERS Safety Report 13790353 (Version 1)
Quarter: 2017Q3

REPORT INFORMATION
  Report Type: Spontaneous
  Country: US (occurrence: US)
  Receive Date: 20170725
  Receipt Date: 20170725
  Transmission Date: 20171127
  Serious: No
  Sender: FDA-Public Use
  Company Number: US-IPSEN BIOPHARMACEUTICALS, INC.-2017-00811

PATIENT
  Sex: Male

DRUGS (10)
  1. CLONAZEPAM. [Concomitant]
     Active Substance: CLONAZEPAM
  2. SOMATULINE DEPOT [Suspect]
     Active Substance: LANREOTIDE ACETATE
     Indication: GIGANTISM
  3. PROBIOTIC [Concomitant]
     Active Substance: PROBIOTICS NOS
  4. METOPROLOL TARTRATE. [Concomitant]
     Active Substance: METOPROLOL TARTRATE
  5. VITAMIN D3 [Concomitant]
     Active Substance: CHOLECALCIFEROL
  6. VITAMIN D [Concomitant]
     Active Substance: CHOLECALCIFEROL
  7. MULTIVITAMIN [Concomitant]
     Active Substance: VITAMINS
  8. PROAIR HFA [Concomitant]
     Active Substance: ALBUTEROL SULFATE
  9. SOMATULINE DEPOT [Suspect]
     Active Substance: LANREOTIDE ACETATE
     Indication: ACROMEGALY
     Dosage: 60 MG
     Route: 058
     Dates: start: 20120501
  10. FISH OIL [Concomitant]
     Active Substance: FISH OIL

REACTIONS (3)
  - Abdominal pain [Unknown]
  - Heart rate decreased [Unknown]
  - Abdominal distension [Unknown]
